FAERS Safety Report 14146115 (Version 1)
Quarter: 2017Q4

REPORT INFORMATION
  Report Type: Spontaneous
  Country: JP (occurrence: JP)
  Receive Date: 20171031
  Receipt Date: 20171031
  Transmission Date: 20180321
  Serious: Yes (Hospitalization, Other)
  Sender: FDA-Public Use
  Company Number: JP-JNJFOC-20171017788

PATIENT
  Sex: Female

DRUGS (1)
  1. RIVAROXABAN [Suspect]
     Active Substance: RIVAROXABAN
     Indication: PRODUCT USED FOR UNKNOWN INDICATION
     Route: 048
     Dates: start: 2007

REACTIONS (11)
  - Back pain [Recovered/Resolved]
  - Discomfort [Recovered/Resolved]
  - Haematochezia [Unknown]
  - Product use in unapproved indication [Unknown]
  - Melaena [Recovered/Resolved]
  - Tinnitus [Recovered/Resolved]
  - Arrhythmia [Unknown]
  - Haemoglobin decreased [Recovering/Resolving]
  - Headache [Recovered/Resolved]
  - Anaemia [Unknown]
  - Off label use [Unknown]

NARRATIVE: CASE EVENT DATE: 2007
